FAERS Safety Report 5620309-3 (Version None)
Quarter: 2008Q1

REPORT INFORMATION
  Report Type: 
  Country: None (occurrence: None)
  Receive Date: 20080208
  Receipt Date: 20080129
  Transmission Date: 20080703
  Serious: Yes (Other)
  Sender: FDA-Public Use
  Company Number: PHHY2008CA01171

PATIENT
  Age: 56 Year
  Sex: Male

DRUGS (4)
  1. CALCIUM CHANNEL BLOCKERS [Concomitant]
  2. DIOVAN [Suspect]
     Route: 048
  3. DIURETICS [Concomitant]
  4. DIOVAN HCT [Suspect]
     Indication: HYPERTENSION

REACTIONS (2)
  - HYPERTENSION [None]
  - URINE ALBUMIN/CREATININE RATIO ABNORMAL [None]
